FAERS Safety Report 5007320-0 (Version None)
Quarter: 2006Q2

REPORT INFORMATION
  Report Type: 
  Country: None (occurrence: None)
  Receive Date: 20060516
  Receipt Date: 20060516
  Transmission Date: 20061013
  Serious: Yes (Other)
  Sender: FDA-Public Use
  Company Number: None

PATIENT
  Age: 79 Year
  Sex: Male
  Weight: 192 kg

DRUGS (13)
  1. SIMVASTATIN [Suspect]
     Indication: HYPERLIPIDAEMIA
     Dosage: 80 MG QD
  2. GABAPENTIN [Concomitant]
  3. PLAVIX [Concomitant]
  4. LOPRESSOR [Concomitant]
  5. T4 [Concomitant]
  6. ALLOPURINOL [Concomitant]
  7. CITRALOPRAM [Concomitant]
  8. SPIRONO FACTOR [Concomitant]
  9. CLONAZEPAM [Concomitant]
  10. ZOCOR [Concomitant]
  11. OMEPRAZOLE [Concomitant]
  12. MORPHINE [Concomitant]
  13. SO4 [Concomitant]

REACTIONS (3)
  - ABASIA [None]
  - ASTHENIA [None]
  - BLOOD CREATINE PHOSPHOKINASE INCREASED [None]
